FAERS Safety Report 4534696-0 (Version None)
Quarter: 2004Q4

REPORT INFORMATION
  Report Type: 
  Country: None (occurrence: None)
  Receive Date: 20041222
  Receipt Date: 20031105
  Transmission Date: 20050328
  Serious: No
  Sender: FDA-Public Use
  Company Number: US-BRISTOL-MYERS SQUIBB COMPANY-12430252

PATIENT
  Age: 52 Year
  Sex: Female
  Weight: 85 kg

DRUGS (4)
  1. PRAVACHOL [Suspect]
     Indication: BLOOD CHOLESTEROL INCREASED
     Route: 048
     Dates: start: 20030724
  2. ENTERIC ASPIRIN [Concomitant]
     Dates: start: 20030724
  3. ZOLOFT [Concomitant]
     Dates: start: 19960101
  4. PREVACID [Concomitant]

REACTIONS (1)
  - BLOOD CHOLESTEROL INCREASED [None]
